FAERS Safety Report 7580801-1 (Version None)
Quarter: 2011Q2

REPORT INFORMATION
  Report Type: 
  Country: None (occurrence: None)
  Receive Date: 20110629
  Receipt Date: 20110614
  Transmission Date: 20111010
  Serious: Yes (Other)
  Sender: FDA-Public Use
  Company Number: US-WATSON-2011-08448

PATIENT
  Age: 57 Year

DRUGS (1)
  1. RAPAFLO [Suspect]
     Indication: BENIGN PROSTATIC HYPERPLASIA
     Dosage: 1 TAB DAILY, TOOK FOR A FEW DAYS
     Route: 048
     Dates: start: 20110601

REACTIONS (3)
  - THIRST [None]
  - POLLAKIURIA [None]
  - BLOOD GLUCOSE INCREASED [None]
